FAERS Safety Report 4361205-1 (Version None)
Quarter: 2004Q2

REPORT INFORMATION
  Report Type: 
  Country: None (occurrence: None)
  Receive Date: 20040505
  Receipt Date: 20030530
  Transmission Date: 20050107
  Serious: Yes (Hospitalization)
  Sender: FDA-Public Use
  Company Number: 8002571

PATIENT
  Age: 40 Year
  Sex: Female

DRUGS (18)
  1. HYDROXYZINE HYDROCHLORIDE [Suspect]
     Indication: PRURITUS
     Dosage: PRN
  2. LORTAB [Suspect]
     Indication: PAIN
  3. DILANTIN [Suspect]
     Indication: CONVULSION
     Dosage: 100 MG 3/D PO
     Route: 048
  4. OGEN [Concomitant]
  5. RANITIDINE HYDROCHLORIDE [Concomitant]
  6. BACLOFEN [Concomitant]
  7. AMITRIPTYLINE HCL [Concomitant]
  8. CELECOXIB [Concomitant]
  9. CLONAZEPAM [Concomitant]
  10. ALPRAZOLAM [Concomitant]
  11. MULTIVITAMIN [Concomitant]
  12. FOLIC ACID [Concomitant]
  13. ZINC [Concomitant]
  14. SECONAL [Concomitant]
  15. DOCUSATE SODIUM [Concomitant]
  16. ACCOLATE [Concomitant]
  17. THEOPHYLLINE [Concomitant]
  18. METHOTREXATE [Concomitant]

REACTIONS (14)
  - ARTERIAL RUPTURE [None]
  - COMA [None]
  - CONSTIPATION [None]
  - DRUG EXPOSURE DURING PREGNANCY [None]
  - GRAND MAL CONVULSION [None]
  - IMMUNE SYSTEM DISORDER [None]
  - LOSS OF CONSCIOUSNESS [None]
  - MULTIPLE SCLEROSIS [None]
  - PARKINSON'S DISEASE [None]
  - PLATELET COUNT DECREASED [None]
  - SKIN ULCER [None]
  - SYSTEMIC LUPUS ERYTHEMATOSUS [None]
  - VOMITING [None]
  - WEIGHT DECREASED [None]
